FAERS Safety Report 7861418-8 (Version None)
Quarter: 2011Q4

REPORT INFORMATION
  Report Type: 
  Country: None (occurrence: None)
  Receive Date: 20111027
  Receipt Date: 20111017
  Transmission Date: 20120403
  Serious: Yes (Death)
  Sender: FDA-Public Use
  Company Number: MX-TEVA-306685ISR

PATIENT
  Sex: Female

DRUGS (1)
  1. CARBAMAZEPINE [Suspect]
     Dosage: 400 MILLIGRAM;
     Route: 064

REACTIONS (11)
  - STRABISMUS [None]
  - SKULL MALFORMATION [None]
  - KYPHOSIS [None]
  - NAIL DISORDER [None]
  - NEONATAL RESPIRATORY ALKALOSIS [None]
  - RESPIRATORY DISTRESS [None]
  - NEUROLOGICAL EXAMINATION ABNORMAL [None]
  - MENINGOMYELOCELE [None]
  - NEUTROPENIA [None]
  - DYSMORPHISM [None]
  - PULMONARY HYPERTENSION [None]
